FAERS Safety Report 8195733-8 (Version None)
Quarter: 2012Q1

REPORT INFORMATION
  Report Type: 
  Country: None (occurrence: None)
  Receive Date: 20120308
  Receipt Date: 20120227
  Transmission Date: 20120608
  Serious: No
  Sender: FDA-Public Use
  Company Number: US-GILEAD-2011-0046046

PATIENT
  Sex: Male

DRUGS (3)
  1. VIRAMUNE [Concomitant]
     Indication: HIV INFECTION
     Route: 064
  2. EMTRICITABINE AND TENOFOVIR DISOPROXIL FUMARATE [Suspect]
     Indication: HIV INFECTION
     Route: 064
  3. RETROVIR [Concomitant]
     Indication: HIV INFECTION
     Dosage: 2000 MG, UNK
     Route: 064
     Dates: start: 20111125

REACTIONS (1)
  - ULTRASOUND ANTENATAL SCREEN ABNORMAL [None]
